FAERS Safety Report 14013237 (Version 2)
Quarter: 2017Q4

REPORT INFORMATION
  Report Type: Spontaneous
  Country: JP (occurrence: JP)
  Receive Date: 20170926
  Receipt Date: 20171012
  Transmission Date: 20180321
  Serious: Yes (Hospitalization, Other)
  Sender: FDA-Public Use
  Company Number: JP-TEVA-809000ROM

PATIENT
  Age: 83 Year
  Sex: Male
  Weight: 66 kg

DRUGS (4)
  1. ETHIODIZED OIL [Concomitant]
     Active Substance: ETHIODIZED OIL
     Route: 013
     Dates: start: 2013
  2. CISPLATIN. [Suspect]
     Active Substance: CISPLATIN
     Indication: HEPATOCELLULAR CARCINOMA
     Dosage: 30 MG; DURING FIRST TACE PROCEDURE
     Route: 013
     Dates: start: 2013
  3. CISPLATIN. [Suspect]
     Active Substance: CISPLATIN
     Indication: HEPATOCELLULAR CARCINOMA
     Dosage: 15 MG; DURING THIRD TACE PROCEDURE
     Route: 013
     Dates: start: 2013
  4. CISPLATIN. [Suspect]
     Active Substance: CISPLATIN
     Indication: HEPATOCELLULAR CARCINOMA
     Dosage: 10MG; DURING SECOND TACE PROCEDURE
     Route: 013
     Dates: start: 2013

REACTIONS (3)
  - Thrombotic microangiopathy [Recovered/Resolved]
  - Disseminated intravascular coagulation [Recovered/Resolved]
  - Hepatic function abnormal [Recovered/Resolved]
